FAERS Safety Report 11181385 (Version 1)
Quarter: 2015Q2

REPORT INFORMATION
  Report Type: Spontaneous
  Country: US (occurrence: US)
  Receive Date: 20150611
  Receipt Date: 20150611
  Transmission Date: 20150821
  Serious: No
  Sender: FDA-Public Use
  Company Number: US-TEVA-569525USA

PATIENT
  Sex: Female

DRUGS (2)
  1. COPAXONE [Suspect]
     Active Substance: GLATIRAMER ACETATE
     Indication: MULTIPLE SCLEROSIS
     Dosage: FORM STRENGTH UNKNOWN
     Route: 065
     Dates: start: 1991
  2. TEGRETOL [Concomitant]
     Active Substance: CARBAMAZEPINE

REACTIONS (2)
  - Splenomegaly [Unknown]
  - Thrombocytopenia [Unknown]
